FAERS Safety Report 25919388 (Version 1)
Quarter: 2025Q4

REPORT INFORMATION
  Report Type: Spontaneous
  Country: US (occurrence: US)
  Receive Date: 20251014
  Receipt Date: 20251014
  Transmission Date: 20260118
  Serious: Yes (Hospitalization, Other)
  Sender: AMNEAL
  Company Number: US-AMNEAL PHARMACEUTICALS-2025-AMRX-03899

PATIENT
  Age: 48 Year
  Sex: Female

DRUGS (1)
  1. ADRENACLICK [Suspect]
     Active Substance: EPINEPHRINE
     Indication: Food allergy
     Dosage: 0.3 MG
     Route: 030

REACTIONS (1)
  - Kounis syndrome [Recovered/Resolved]
